FAERS Safety Report 4850804-6 (Version None)
Quarter: 2005Q4

REPORT INFORMATION
  Report Type: 
  Country: None (occurrence: None)
  Receive Date: 20051208
  Receipt Date: 20051116
  Transmission Date: 20060501
  Serious: Yes (Death, Other)
  Sender: FDA-Public Use
  Company Number: GBS051018675

PATIENT
  Age: 67 Year
  Sex: Male
  Weight: 70 kg

DRUGS (4)
  1. GEMZAR [Suspect]
     Indication: NON-SMALL CELL LUNG CANCER
     Dosage: 2318 MG, INTRAVENOUS
     Route: 042
     Dates: start: 20050714
  2. CARBOPLATIN [Concomitant]
  3. DEXAMETHASONE [Concomitant]
  4. DICLOFENAC SODIUM [Concomitant]

REACTIONS (2)
  - NEUTROPENIC SEPSIS [None]
  - PANCYTOPENIA [None]
